FAERS Safety Report 11884612 (Version 1)
Quarter: 2016Q1

REPORT INFORMATION
  Report Type: Spontaneous
  Country: CH (occurrence: CH)
  Receive Date: 20160104
  Receipt Date: 20160104
  Transmission Date: 20160526
  Serious: Yes (Hospitalization, Other)
  Sender: FDA-Public Use
  Company Number: CH-009507513-1512CHE013860

PATIENT
  Age: 58 Year
  Sex: Male

DRUGS (3)
  1. TAMSULOSIN HYDROCHLORIDE. [Suspect]
     Active Substance: TAMSULOSIN HYDROCHLORIDE
     Dosage: UPTO 10 DOSE UNITS, ONCE (UPTO 4 MG)
     Route: 048
     Dates: start: 20150215, end: 20150215
  2. ALCOHOL. [Suspect]
     Active Substance: ALCOHOL
     Dosage: AMOUNT INGESTED WAS UNKNOWN
     Route: 048
     Dates: start: 20150215, end: 20150215
  3. COZAAR [Suspect]
     Active Substance: LOSARTAN POTASSIUM
     Dosage: UPTO 28 DOSE UNITS, ONCE (TOTAL DAILY DOSE: UP TO 1400 MG)
     Route: 048
     Dates: start: 20150215, end: 20150215

REACTIONS (6)
  - Seizure [Recovered/Resolved]
  - Overdose [Unknown]
  - Suicide attempt [Recovered/Resolved]
  - Drug withdrawal syndrome [Recovered/Resolved]
  - Blood creatinine increased [Recovered/Resolved]
  - Confusional state [Recovered/Resolved]

NARRATIVE: CASE EVENT DATE: 20150215
